FAERS Safety Report 10239337 (Version 1)
Quarter: 2014Q2

REPORT INFORMATION
  Report Type: Spontaneous
  Country: US (occurrence: US)
  Receive Date: 20140616
  Receipt Date: 20140616
  Transmission Date: 20141212
  Serious: Yes (Other)
  Sender: FDA-Public Use
  Company Number: US-PFIZER INC-2014164430

PATIENT
  Age: 57 Year
  Sex: Female
  Weight: 47.2 kg

DRUGS (2)
  1. SKELAXIN [Suspect]
     Indication: RHEUMATOID ARTHRITIS
     Dosage: 800 MG, 3X/DAY
  2. DILANTIN [Concomitant]
     Dosage: UNK
     Dates: start: 1988

REACTIONS (3)
  - Systemic lupus erythematosus [Unknown]
  - Lymphadenopathy [Unknown]
  - General physical health deterioration [Unknown]
